FAERS Safety Report 6204607-0 (Version None)
Quarter: 2009Q2

REPORT INFORMATION
  Report Type: 
  Country: None (occurrence: None)
  Receive Date: 20090527
  Receipt Date: 20090515
  Transmission Date: 20091009
  Serious: Yes (Other)
  Sender: FDA-Public Use
  Company Number: GB-PFIZER INC-2009213571

PATIENT
  Age: 37 Year

DRUGS (5)
  1. LYRICA [Suspect]
     Indication: SLEEP DISORDER
     Dosage: 300 MG, 1X/DAY
     Dates: start: 20090507, end: 20090507
  2. AMITRIPTYLINE [Concomitant]
     Dosage: 10 MG, UNK
  3. PAROXETINE [Concomitant]
     Dosage: 20 MG, UNK
  4. PAROXETINE [Concomitant]
     Dosage: 30 MG, UNK
  5. ZOPICLONE [Concomitant]

REACTIONS (4)
  - COORDINATION ABNORMAL [None]
  - HEADACHE [None]
  - MOVEMENT DISORDER [None]
  - PARALYSIS [None]
